FAERS Safety Report 7365645-8 (Version None)
Quarter: 2011Q1

REPORT INFORMATION
  Report Type: 
  Country: None (occurrence: None)
  Receive Date: 20110322
  Receipt Date: 20110311
  Transmission Date: 20110831
  Serious: Yes (Other)
  Sender: FDA-Public Use
  Company Number: AR-AMGEN-ARGSP2011011360

PATIENT
  Age: 46 Year
  Sex: Female
  Weight: 56 kg

DRUGS (5)
  1. CALCIUM [Concomitant]
     Dosage: UNK
     Route: 048
  2. MEPREDNISONE [Concomitant]
     Dosage: UNK
     Route: 048
  3. METHOTREXATE [Concomitant]
     Dosage: UNK
     Route: 048
  4. ENBREL [Suspect]
     Indication: RHEUMATOID ARTHRITIS
     Dosage: 50 MG, WEEKLY
     Route: 058
     Dates: start: 20090101
  5. FOLIC ACID [Concomitant]
     Dosage: UNK
     Route: 048

REACTIONS (2)
  - RHEUMATOID ARTHRITIS [None]
  - DRUG INEFFECTIVE [None]
